FAERS Safety Report 7339880-9 (Version None)
Quarter: 2011Q1

REPORT INFORMATION
  Report Type: 
  Country: None (occurrence: None)
  Receive Date: 20110309
  Receipt Date: 20110223
  Transmission Date: 20110831
  Serious: Yes (Other)
  Sender: FDA-Public Use
  Company Number: US-BAYER-201024238NA

PATIENT
  Sex: Female

DRUGS (20)
  1. UNCODEABLE ^UNCLASSIFIABLE^ [Concomitant]
  2. ZYRTEC [Concomitant]
  3. WELLBUTRIN XL [Concomitant]
     Dosage: 450 MG, UNK
  4. UNCODEABLE ^UNCLASSIFIABLE^ [Concomitant]
  5. YAZ [Suspect]
     Indication: ACNE
  6. YASMIN [Suspect]
     Indication: ACNE
     Dosage: UNK
     Dates: start: 20060901
  7. SERTRALINE HYDROCHLORIDE [Concomitant]
     Dosage: 50 MG, UNK
  8. TYLENOL PM [Concomitant]
  9. AMBIEN [Concomitant]
  10. CELEXA [Concomitant]
  11. DOCUSATE [Concomitant]
  12. OCELLA [Suspect]
     Indication: ACNE
  13. NASACORT [Concomitant]
  14. ZOLOFT [Concomitant]
  15. ATENOLOL [Concomitant]
     Dosage: 15 MG, UNK
  16. FISH OIL [Concomitant]
  17. ALBUTEROL [Concomitant]
  18. MULTI-VITAMIN [Concomitant]
  19. RANITIDINE [Concomitant]
  20. OMEPRAZOLE [Concomitant]

REACTIONS (2)
  - CHOLELITHIASIS [None]
  - CHOLECYSTITIS [None]
